FAERS Safety Report 24028524 (Version 1)
Quarter: 2024Q2

REPORT INFORMATION
  Report Type: Spontaneous
  Country: FR (occurrence: FR)
  Receive Date: 20240628
  Receipt Date: 20240628
  Transmission Date: 20240716
  Serious: Yes (Hospitalization)
  Sender: FDA-Public Use
  Company Number: FR-AFSSAPS-AN2024000483

PATIENT
  Age: 90 Year
  Sex: Female
  Weight: 35 kg

DRUGS (5)
  1. OFLOXACIN [Suspect]
     Active Substance: OFLOXACIN
     Indication: Urinary tract infection
     Dosage: UNK
     Route: 048
     Dates: start: 20240318, end: 20240323
  2. PANTOPRAZOLE [Suspect]
     Active Substance: PANTOPRAZOLE
     Indication: Hiatus hernia
     Dosage: 40 MILLIGRAM, DAILY
     Route: 048
     Dates: start: 202402, end: 202403
  3. DIGOXIN [Suspect]
     Active Substance: DIGOXIN
     Indication: Tachyarrhythmia
     Dosage: 0.13 MILLIGRAM, DAILY
     Route: 048
     Dates: start: 202402
  4. NEO-MERCAZOLE [Suspect]
     Active Substance: CARBIMAZOLE
     Indication: Autoimmune thyroiditis
     Dosage: 1 DOSAGE FORM, QOD
     Route: 048
     Dates: start: 202402
  5. ELIQUIS [Suspect]
     Active Substance: APIXABAN
     Indication: Atrial fibrillation
     Dosage: 5 MILLIGRAM, DAILY
     Route: 048
     Dates: start: 202402, end: 20240323

REACTIONS (1)
  - Acquired haemophilia [Not Recovered/Not Resolved]

NARRATIVE: CASE EVENT DATE: 20240323
